FAERS Safety Report 9008659 (Version 1)
Quarter: 2013Q1

REPORT INFORMATION
  Report Type: Report from Study
  Country: US (occurrence: US)
  Receive Date: 20130111
  Receipt Date: 20130111
  Transmission Date: 20140127
  Serious: Yes (Hospitalization, Other)
  Sender: FDA-Public Use
  Company Number: US-ABBOTT-13P-163-1033378-00

PATIENT
  Sex: Male
  Weight: 127.12 kg

DRUGS (8)
  1. HUMIRA [Suspect]
     Indication: RHEUMATOID ARTHRITIS
     Dates: end: 201209
  2. METHOTREXATE [Concomitant]
     Indication: RHEUMATOID ARTHRITIS
     Dates: end: 201209
  3. METFORMIN [Concomitant]
     Indication: DIABETES MELLITUS
  4. AMARYL [Concomitant]
     Indication: DIABETES MELLITUS
  5. MULTIVITAMIN [Concomitant]
     Indication: VITAMIN SUPPLEMENTATION
  6. ASPIRIN [Concomitant]
     Indication: CARDIOVASCULAR EVENT PROPHYLAXIS
     Dosage: LOW DOSE
  7. PENTASA [Concomitant]
     Indication: COLITIS ULCERATIVE
  8. LIBRAX [Concomitant]
     Indication: COLITIS ULCERATIVE

REACTIONS (7)
  - Blister [Not Recovered/Not Resolved]
  - Wound [Not Recovered/Not Resolved]
  - Wound infection staphylococcal [Not Recovered/Not Resolved]
  - Osteomyelitis [Not Recovered/Not Resolved]
  - Blood glucose increased [Not Recovered/Not Resolved]
  - Ankle fracture [Recovered/Resolved]
  - Fall [Recovered/Resolved]
